FAERS Safety Report 18950523 (Version 1)
Quarter: 2021Q1

REPORT INFORMATION
  Report Type: Spontaneous
  Country: US (occurrence: US)
  Receive Date: 20210228
  Receipt Date: 20210228
  Transmission Date: 20210420
  Serious: No
  Sender: FDA-Public Use
  Company Number: US-ROCHE-2667602

PATIENT
  Sex: Female
  Weight: 74.46 kg

DRUGS (1)
  1. XOLAIR [Suspect]
     Active Substance: OMALIZUMAB
     Indication: PRODUCT USED FOR UNKNOWN INDICATION
     Route: 058
     Dates: start: 20200630

REACTIONS (3)
  - Pruritus [Recovered/Resolved]
  - Dry mouth [Unknown]
  - Dry skin [Recovered/Resolved]
